FAERS Safety Report 14333622 (Version 1)
Quarter: 2017Q4

REPORT INFORMATION
  Report Type: Spontaneous
  Country: DE (occurrence: DE)
  Receive Date: 20171228
  Receipt Date: 20171228
  Transmission Date: 20180321
  Serious: Yes (Other)
  Sender: FDA-Public Use
  Company Number: DE-OTSUKA-2015_002021

PATIENT
  Age: 50 Year
  Sex: Female
  Weight: 58 kg

DRUGS (2)
  1. ABILIFY [Suspect]
     Active Substance: ARIPIPRAZOLE
     Dosage: 20 ML, QD
     Route: 048
     Dates: start: 20150510
  2. ABILIFY [Suspect]
     Active Substance: ARIPIPRAZOLE
     Indication: PRODUCT USED FOR UNKNOWN INDICATION
     Dosage: 15 MG/ML, QD
     Route: 048
     Dates: start: 20150424

REACTIONS (16)
  - Pulmonary pain [Unknown]
  - Compulsive sexual behaviour [Unknown]
  - Peripheral swelling [Unknown]
  - Epistaxis [Unknown]
  - Breast pain [Unknown]
  - Constipation [Unknown]
  - Musculoskeletal stiffness [Unknown]
  - Nasal dryness [Unknown]
  - Acne [Not Recovered/Not Resolved]
  - Hypertension [Unknown]
  - Palpitations [Unknown]
  - Insomnia [Unknown]
  - Tremor [Not Recovered/Not Resolved]
  - Weight increased [Unknown]
  - Arthralgia [Unknown]
  - Vision blurred [Recovered/Resolved]

NARRATIVE: CASE EVENT DATE: 20150424
